FAERS Safety Report 6169867-3 (Version None)
Quarter: 2009Q2

REPORT INFORMATION
  Report Type: 
  Country: None (occurrence: None)
  Receive Date: 20090428
  Receipt Date: 20090420
  Transmission Date: 20091009
  Serious: Yes (Other)
  Sender: FDA-Public Use
  Company Number: US-BAYER-200911245BCC

PATIENT
  Age: 91 Year
  Sex: Female
  Weight: 70 kg

DRUGS (6)
  1. ASPIRIN [Suspect]
     Indication: STENT PLACEMENT
     Dosage: TOTAL DAILY DOSE: 325 MG  UNIT DOSE: 325 MG
     Dates: start: 20090211, end: 20090216
  2. ASPIRIN [Suspect]
     Indication: STENT PLACEMENT
     Dosage: TOTAL DAILY DOSE: 325 MG  UNIT DOSE: 325 MG
     Dates: start: 20090217
  3. TOPROL-XL [Concomitant]
     Dosage: DOSING LISTED AS ^12.5^
  4. LASIX [Concomitant]
  5. COLACE [Concomitant]
  6. PLAVIX [Concomitant]

REACTIONS (6)
  - ABDOMINAL DISTENSION [None]
  - ABDOMINAL PAIN [None]
  - ABDOMINAL RIGIDITY [None]
  - DUODENAL ULCER [None]
  - ECCHYMOSIS [None]
  - PARAESTHESIA [None]
